FAERS Safety Report 6898378-2 (Version None)
Quarter: 2010Q3

REPORT INFORMATION
  Report Type: 
  Country: None (occurrence: None)
  Receive Date: 20100802
  Receipt Date: 20071009
  Transmission Date: 20110219
  Serious: Yes (Other)
  Sender: FDA-Public Use
  Company Number: US-PFIZER INC-2007075458

PATIENT
  Sex: Female
  Weight: 75 kg

DRUGS (4)
  1. LYRICA [Suspect]
     Indication: CARPAL TUNNEL SYNDROME
     Route: 048
     Dates: start: 20070828, end: 20070831
  2. LEVOTHYROXINE SODIUM [Concomitant]
  3. ALL OTHER THERAPEUTIC PRODUCTS [Concomitant]
  4. CARTIA XT [Concomitant]

REACTIONS (5)
  - DRUG INEFFECTIVE [None]
  - FLUID RETENTION [None]
  - MUSCULAR WEAKNESS [None]
  - PAIN OF SKIN [None]
  - WEIGHT INCREASED [None]
